FAERS Safety Report 12467343 (Version 4)
Quarter: 2017Q1

REPORT INFORMATION
  Report Type: Spontaneous
  Country: US (occurrence: US)
  Receive Date: 20160615
  Receipt Date: 20170124
  Transmission Date: 20170428
  Serious: Yes (Other)
  Sender: FDA-Public Use
  Company Number: US-PFIZER INC-2016279832

PATIENT
  Age: 68 Year
  Sex: Female
  Weight: 104 kg

DRUGS (15)
  1. IBRANCE [Suspect]
     Active Substance: PALBOCICLIB
     Indication: BREAST CANCER METASTATIC
     Dosage: 125 MG, CYCLIC (21 DAYS ON AND 7 DAYS OFF )
     Dates: start: 20160204
  2. IBRANCE [Suspect]
     Active Substance: PALBOCICLIB
     Dosage: 125 MG, CYCLIC (ONE CAPSULE ONCE IN THE MORNING FOR 14 DAYS ON THEN OFF FOR 14DAYS)
     Route: 048
     Dates: start: 2016
  3. AMITRIPTYLINE [Concomitant]
     Active Substance: AMITRIPTYLINE
     Indication: SLEEP DISORDER
     Dosage: 10 MG TABLET AT NIGHT BEFORE SHE GOES TO BED
  4. BACLOFEN. [Concomitant]
     Active Substance: BACLOFEN
     Indication: MUSCLE RELAXANT THERAPY
  5. TIZANIDINE. [Concomitant]
     Active Substance: TIZANIDINE
     Indication: HEADACHE
     Dosage: 4 MG, 1X/DAY (2MG TWO TABLETS BY MOUTH AT BEDTIME)
     Route: 048
     Dates: start: 2016
  6. AMITRIPTYLINE [Concomitant]
     Active Substance: AMITRIPTYLINE
     Indication: HEADACHE
  7. BACLOFEN. [Concomitant]
     Active Substance: BACLOFEN
     Indication: SLEEP DISORDER
     Dosage: 10 MG ONCE A DAY, WHEN SHE GOES TO BED
  8. ASPIRIN. [Concomitant]
     Active Substance: ASPIRIN
     Dosage: UNK
  9. OMEPRAZOLE. [Concomitant]
     Active Substance: OMEPRAZOLE
     Indication: HEADACHE
     Dosage: 20 MG, 2X/DAY
     Route: 048
     Dates: start: 2016
  10. LETROZOLE. [Suspect]
     Active Substance: LETROZOLE
     Indication: BREAST CANCER METASTATIC
     Dosage: 2.5 MG, 1X/DAY
     Route: 048
     Dates: start: 2016
  11. AMITRIPTYLINE [Concomitant]
     Active Substance: AMITRIPTYLINE
     Indication: MUSCLE RELAXANT THERAPY
     Dosage: 50 MG, 1X/DAY [AT BEDTIME]
     Route: 048
     Dates: start: 2016
  12. IBRANCE [Suspect]
     Active Substance: PALBOCICLIB
     Dosage: 125 MG, CYCLIC [ONCE A DAY IN THE MORNING 14 DAYS ON AND 14 DAYS OFF]
     Route: 048
  13. WELLBUTRIN [Concomitant]
     Active Substance: BUPROPION HYDROCHLORIDE
     Indication: DEPRESSION
     Dosage: 100 MG, 2X/DAY
     Route: 048
     Dates: start: 201607
  14. WARFARIN [Concomitant]
     Active Substance: WARFARIN
     Indication: DEEP VEIN THROMBOSIS
     Dosage: 5MG TWICE A WEEK AT BEDTIME; 7.5MG FIVE DAYS A WEEK ONCE AT BEDTIME
     Dates: start: 201604
  15. BOTOX [Concomitant]
     Active Substance: ONABOTULINUMTOXINA
     Indication: HEADACHE
     Dosage: UNK
     Dates: start: 2016

REACTIONS (11)
  - Nausea [Recovered/Resolved]
  - Candida infection [Recovered/Resolved]
  - Gastritis bacterial [Recovered/Resolved]
  - Malaise [Recovering/Resolving]
  - Productive cough [Unknown]
  - Depression [Unknown]
  - Pain [Recovering/Resolving]
  - Asthenia [Unknown]
  - Fatigue [Recovering/Resolving]
  - Neoplasm progression [Unknown]
  - Haemorrhoids [Unknown]

NARRATIVE: CASE EVENT DATE: 2016
